FAERS Safety Report 8859099 (Version 1)
Quarter: 2012Q4

REPORT INFORMATION
  Report Type: Spontaneous
  Country: US (occurrence: None)
  Receive Date: 20121024
  Receipt Date: 20121024
  Transmission Date: 20130627
  Serious: Yes (Disabling)
  Sender: FDA-Public Use
  Company Number: None

PATIENT
  Age: 44 Year
  Sex: Male
  Weight: 79.38 kg

DRUGS (1)
  1. LARIAM [Suspect]
     Indication: MALARIA PROPHYLAXIS
     Route: 048
     Dates: start: 20021128, end: 20030512

REACTIONS (6)
  - Visual impairment [None]
  - Poisoning [None]
  - Speech disorder [None]
  - Nervous system disorder [None]
  - Convulsion [None]
  - Amnesia [None]
